FAERS Safety Report 18033790 (Version 1)
Quarter: 2020Q3

REPORT INFORMATION
  Report Type: Spontaneous
  Country: BE (occurrence: BE)
  Receive Date: 20200716
  Receipt Date: 20200716
  Transmission Date: 20201103
  Serious: Yes (Other)
  Sender: FDA-Public Use
  Company Number: BE-ROCHE-2642090

PATIENT
  Sex: Female

DRUGS (3)
  1. INTERFERON ALFA?2A [Suspect]
     Active Substance: INTERFERON ALFA-2A
     Indication: CUTANEOUS T-CELL LYMPHOMA
     Route: 065
     Dates: start: 2015
  2. PEGASYS [Suspect]
     Active Substance: PEGINTERFERON ALFA-2A
     Indication: CUTANEOUS T-CELL LYMPHOMA
     Route: 065
  3. INTERFERON ALFA?2A [Suspect]
     Active Substance: INTERFERON ALFA-2A
     Indication: NEOPLASM

REACTIONS (3)
  - Intentional product use issue [Unknown]
  - Hepatotoxicity [Unknown]
  - Off label use [Unknown]
